FAERS Safety Report 11350498 (Version 1)
Quarter: 2015Q3

REPORT INFORMATION
  Report Type: Spontaneous
  Country: US (occurrence: US)
  Receive Date: 20150807
  Receipt Date: 20150807
  Transmission Date: 20151125
  Serious: Yes (Hospitalization)
  Sender: FDA-Public Use
  Company Number: US-PFIZER INC-2015256261

PATIENT
  Age: 64 Year
  Sex: Male

DRUGS (4)
  1. METHYLPHENIDATE HYDROCHLORIDE. [Suspect]
     Active Substance: METHYLPHENIDATE HYDROCHLORIDE
     Indication: NARCOLEPSY
     Dosage: 60 MG, DAILY
  2. METHYLPHENIDATE HYDROCHLORIDE. [Suspect]
     Active Substance: METHYLPHENIDATE HYDROCHLORIDE
     Dosage: 100-120 MG, DAILY
  3. METHYLPHENIDATE HYDROCHLORIDE. [Suspect]
     Active Substance: METHYLPHENIDATE HYDROCHLORIDE
     Dosage: UP TO 200 MG DAILY
  4. PROTRIPTYLINE [Concomitant]
     Active Substance: PROTRIPTYLINE
     Indication: NARCOLEPSY
     Dosage: 30 MG, DAILY, AT BEDTIME

REACTIONS (5)
  - Drug abuse [Unknown]
  - Psychotic disorder [Unknown]
  - Delusional disorder, unspecified type [Recovering/Resolving]
  - Major depression [Unknown]
  - Hallucination, auditory [Recovered/Resolved]
